FAERS Safety Report 10661724 (Version 1)
Quarter: 2014Q4

REPORT INFORMATION
  Report Type: Spontaneous
  Country: US (occurrence: None)
  Receive Date: 20141217
  Receipt Date: 20141217
  Transmission Date: 20150529
  Serious: Yes (Hospitalization)
  Sender: FDA-Public Use
  Company Number: None

PATIENT
  Sex: Female
  Weight: 87.7 kg

DRUGS (13)
  1. LACTULOSE. [Concomitant]
     Active Substance: LACTULOSE
  2. OLYSIO [Suspect]
     Active Substance: SIMEPREVIR
     Indication: HEPATITIS C
     Route: 048
     Dates: start: 20140806, end: 20141028
  3. ERGOCALCIFEROL. [Concomitant]
     Active Substance: ERGOCALCIFEROL
  4. FUROSEMIDE. [Concomitant]
     Active Substance: FUROSEMIDE
  5. NADOLOL. [Concomitant]
     Active Substance: NADOLOL
  6. RIFAXIMIN [Concomitant]
     Active Substance: RIFAXIMIN
  7. SOVALDI [Suspect]
     Active Substance: SOFOSBUVIR
     Indication: HEPATITIS C
     Route: 048
     Dates: start: 20140806, end: 20141028
  8. ALBUTEROL SULFATE INHALE [Concomitant]
  9. MONTELUKAST [Concomitant]
     Active Substance: MONTELUKAST SODIUM
  10. SPIRONOLACTONE. [Concomitant]
     Active Substance: SPIRONOLACTONE
  11. LATANOPROST. [Concomitant]
     Active Substance: LATANOPROST
  12. VALSARTAN. [Concomitant]
     Active Substance: VALSARTAN
  13. OMEPRAZOLE. [Concomitant]
     Active Substance: OMEPRAZOLE

REACTIONS (3)
  - Cardiac failure congestive [None]
  - Hepatitis acute [None]
  - Cholestatic liver injury [None]

NARRATIVE: CASE EVENT DATE: 20141105
